FAERS Safety Report 7212808-8 (Version None)
Quarter: 2011Q1

REPORT INFORMATION
  Report Type: 
  Country: None (occurrence: None)
  Receive Date: 20110106
  Receipt Date: 20101123
  Transmission Date: 20110831
  Serious: Yes (Other)
  Sender: FDA-Public Use
  Company Number: US-BAXTER-2009BH016611

PATIENT
  Age: 41 Year
  Sex: Male
  Weight: 68 kg

DRUGS (75)
  1. HEPARIN SODIUM INJECTION [Suspect]
     Indication: CARDIAC PACEMAKER INSERTION
     Route: 042
     Dates: start: 19990118, end: 19990118
  2. HEPARIN SODIUM INJECTION [Suspect]
     Route: 042
     Dates: start: 19990122, end: 19990101
  3. HEPARIN SODIUM INJECTION [Suspect]
     Route: 042
     Dates: start: 20070705, end: 20070701
  4. HEPARIN SODIUM INJECTION [Suspect]
     Route: 042
     Dates: start: 20000101, end: 20000101
  5. HEPARIN SODIUM INJECTION [Suspect]
     Route: 065
     Dates: start: 20080313, end: 20080301
  6. HEPARIN SODIUM INJECTION [Suspect]
     Route: 042
     Dates: start: 20071212, end: 20071201
  7. HEPARIN SODIUM INJECTION [Suspect]
     Route: 042
     Dates: start: 20090130, end: 20090130
  8. HEPARIN SODIUM INJECTION [Suspect]
     Route: 042
     Dates: start: 20090130, end: 20090130
  9. HEPARIN SODIUM INJECTION [Suspect]
     Route: 042
     Dates: start: 20090131, end: 20090131
  10. WARFARIN [Concomitant]
     Route: 065
  11. KAY CIEL DURA-TABS [Concomitant]
     Indication: PRODUCT USED FOR UNKNOWN INDICATION
     Route: 065
  12. HEPARIN SODIUM INJECTION [Suspect]
     Route: 042
     Dates: start: 19990122, end: 19990101
  13. HEPARIN SODIUM INJECTION [Suspect]
     Route: 042
     Dates: start: 20070705, end: 20070701
  14. HEPARIN SODIUM INJECTION [Suspect]
     Route: 042
     Dates: start: 20090429, end: 20090429
  15. HEPARIN SODIUM INJECTION [Suspect]
     Route: 042
     Dates: start: 20071212, end: 20071201
  16. HEPARIN SODIUM INJECTION [Suspect]
     Route: 042
     Dates: start: 20090130, end: 20090130
  17. HEPARIN SODIUM INJECTION [Suspect]
     Route: 065
     Dates: start: 20070708, end: 20070708
  18. HEPARIN SODIUM INJECTION [Suspect]
     Route: 065
     Dates: start: 20070708, end: 20070708
  19. TOPROL-XL [Concomitant]
     Indication: PRODUCT USED FOR UNKNOWN INDICATION
     Route: 065
  20. SOTALOL HCL [Concomitant]
     Indication: PRODUCT USED FOR UNKNOWN INDICATION
     Route: 065
  21. COZAAR [Concomitant]
     Indication: PRODUCT USED FOR UNKNOWN INDICATION
     Route: 065
  22. HEPARIN SODIUM INJECTION [Suspect]
     Route: 042
     Dates: start: 20070705, end: 20070701
  23. HEPARIN SODIUM INJECTION [Suspect]
     Route: 042
     Dates: start: 20070705, end: 20070701
  24. HEPARIN SODIUM INJECTION [Suspect]
     Route: 065
     Dates: start: 20080313, end: 20080301
  25. HEPARIN SODIUM INJECTION [Suspect]
     Route: 065
     Dates: start: 20080313, end: 20080301
  26. HEPARIN SODIUM INJECTION [Suspect]
     Route: 042
     Dates: start: 20090429, end: 20090429
  27. HEPARIN SODIUM INJECTION [Suspect]
     Route: 042
     Dates: start: 20071212, end: 20071201
  28. HEPARIN SODIUM INJECTION [Suspect]
     Route: 065
     Dates: start: 20061129, end: 20061129
  29. HEPARIN SODIUM INJECTION [Suspect]
     Route: 065
     Dates: start: 20061129, end: 20061129
  30. HEPARIN SODIUM INJECTION [Suspect]
     Route: 065
     Dates: start: 20061201, end: 20061201
  31. HEPARIN SODIUM INJECTION [Suspect]
     Route: 042
     Dates: start: 20090131, end: 20090131
  32. HEPARIN SODIUM INJECTION [Suspect]
     Route: 065
     Dates: start: 20070708, end: 20070708
  33. WARFARIN [Concomitant]
     Indication: PRODUCT USED FOR UNKNOWN INDICATION
     Route: 065
  34. HEPARIN SODIUM INJECTION [Suspect]
     Route: 040
     Dates: start: 20061129, end: 20061129
  35. HEPARIN SODIUM INJECTION [Suspect]
     Route: 040
     Dates: start: 20061129, end: 20061129
  36. HEPARIN SODIUM INJECTION [Suspect]
     Route: 065
     Dates: start: 20071101, end: 20071101
  37. HEPARIN SODIUM INJECTION [Suspect]
     Route: 065
     Dates: start: 20071101, end: 20071101
  38. HEPARIN SODIUM INJECTION [Suspect]
     Route: 065
     Dates: start: 20061129, end: 20061129
  39. HEPARIN SODIUM INJECTION [Suspect]
     Route: 065
     Dates: start: 20061201, end: 20061201
  40. HEPARIN SODIUM INJECTION [Suspect]
     Route: 065
     Dates: start: 20070708, end: 20070708
  41. HEPARIN SODIUM 5,000 UNITS IN DEXTROSE 5% [Suspect]
     Route: 042
     Dates: start: 20070707, end: 20070709
  42. LASIX [Concomitant]
     Indication: PRODUCT USED FOR UNKNOWN INDICATION
     Route: 065
  43. LIPITOR [Concomitant]
     Indication: PRODUCT USED FOR UNKNOWN INDICATION
     Route: 065
  44. STEROID INJECTION [Concomitant]
     Indication: PRODUCT USED FOR UNKNOWN INDICATION
     Route: 065
     Dates: start: 20070701, end: 20071101
  45. HEPARIN SODIUM INJECTION [Suspect]
     Indication: AORTIC VALVE REPLACEMENT
     Route: 042
     Dates: start: 19990118, end: 19990118
  46. HEPARIN SODIUM INJECTION [Suspect]
     Indication: LUNG OPERATION
     Route: 042
     Dates: start: 19990118, end: 19990118
  47. HEPARIN SODIUM INJECTION [Suspect]
     Route: 042
     Dates: start: 20000101, end: 20000101
  48. HEPARIN SODIUM INJECTION [Suspect]
     Route: 042
     Dates: start: 20090429, end: 20090429
  49. HEPARIN SODIUM INJECTION [Suspect]
     Route: 040
     Dates: start: 20061129, end: 20061129
  50. HEPARIN SODIUM INJECTION [Suspect]
     Route: 065
     Dates: start: 20061129, end: 20061129
  51. HEPARIN SODIUM INJECTION [Suspect]
     Route: 042
     Dates: start: 20090130, end: 20090130
  52. HEPARIN SODIUM INJECTION [Suspect]
     Route: 065
     Dates: start: 20061201, end: 20061201
  53. CARDIZEM [Concomitant]
     Indication: PRODUCT USED FOR UNKNOWN INDICATION
     Route: 065
  54. MAGNESIUM [Concomitant]
     Indication: PRODUCT USED FOR UNKNOWN INDICATION
     Route: 065
  55. HEPARIN SODIUM INJECTION [Suspect]
     Route: 042
     Dates: start: 20000101, end: 20000101
  56. HEPARIN SODIUM INJECTION [Suspect]
     Route: 042
     Dates: start: 20000101, end: 20000101
  57. HEPARIN SODIUM INJECTION [Suspect]
     Route: 065
     Dates: start: 20080313, end: 20080301
  58. HEPARIN SODIUM INJECTION [Suspect]
     Route: 040
     Dates: start: 20061129, end: 20061129
  59. HEPARIN SODIUM INJECTION [Suspect]
     Route: 042
     Dates: start: 20071212, end: 20071201
  60. HEPARIN SODIUM INJECTION [Suspect]
     Route: 065
     Dates: start: 20071101, end: 20071101
  61. HEPARIN SODIUM INJECTION [Suspect]
     Route: 065
     Dates: start: 20061201, end: 20061201
  62. HEPARIN SODIUM INJECTION [Suspect]
     Route: 042
     Dates: start: 20090131, end: 20090131
  63. HEPARIN SODIUM INJECTION [Suspect]
     Route: 042
     Dates: start: 20090131, end: 20090131
  64. HEPARIN SODIUM 5,000 UNITS IN DEXTROSE 5% [Suspect]
     Indication: PROPHYLAXIS
     Route: 042
     Dates: start: 20090429, end: 20090501
  65. POTASSIUM [Concomitant]
     Indication: PRODUCT USED FOR UNKNOWN INDICATION
     Route: 065
  66. HEPARIN SODIUM INJECTION [Suspect]
     Route: 042
     Dates: start: 19990122, end: 19990101
  67. HEPARIN SODIUM INJECTION [Suspect]
     Route: 042
     Dates: start: 19990122, end: 19990101
  68. HEPARIN SODIUM 5,000 UNITS IN DEXTROSE 5% [Suspect]
     Route: 042
     Dates: start: 20061201, end: 20061203
  69. ASPIRIN [Concomitant]
     Indication: PRODUCT USED FOR UNKNOWN INDICATION
     Route: 065
  70. HEPARIN SODIUM INJECTION [Suspect]
     Indication: CATHETERISATION CARDIAC
     Route: 042
     Dates: start: 19990118, end: 19990118
  71. HEPARIN SODIUM INJECTION [Suspect]
     Route: 042
     Dates: start: 20090429, end: 20090429
  72. HEPARIN SODIUM INJECTION [Suspect]
     Route: 065
     Dates: start: 20071101, end: 20071101
  73. HEPARIN SODIUM 5,000 UNITS IN DEXTROSE 5% [Suspect]
     Route: 042
     Dates: start: 20061129, end: 20061130
  74. BETAPACE [Concomitant]
     Indication: PRODUCT USED FOR UNKNOWN INDICATION
     Route: 065
  75. NATRECOR [Concomitant]
     Indication: PRODUCT USED FOR UNKNOWN INDICATION
     Route: 065

REACTIONS (20)
  - PULMONARY OEDEMA [None]
  - GALLBLADDER DISORDER [None]
  - OEDEMA MOUTH [None]
  - HYPERSENSITIVITY [None]
  - PNEUMONIA [None]
  - ATRIAL FIBRILLATION [None]
  - MITRAL VALVE INCOMPETENCE [None]
  - RESPIRATORY FAILURE [None]
  - DYSPNOEA [None]
  - PARAESTHESIA [None]
  - HYPOAESTHESIA [None]
  - CARDIAC FAILURE CONGESTIVE [None]
  - PHARYNGEAL OEDEMA [None]
  - HYPOXIA [None]
  - PLEURAL EFFUSION [None]
  - BILIARY TRACT DISORDER [None]
  - HYPERCHOLESTEROLAEMIA [None]
  - BLOOD PRESSURE FLUCTUATION [None]
  - COUGH [None]
  - ASTHENIA [None]
